FAERS Safety Report 7880397-0 (Version None)
Quarter: 2011Q4

REPORT INFORMATION
  Report Type: 
  Country: None (occurrence: None)
  Receive Date: 20111101
  Receipt Date: 20111024
  Transmission Date: 20120403
  Serious: Yes (Other)
  Sender: FDA-Public Use
  Company Number: PHHY2011FR94697

PATIENT
  Age: 45 Year
  Sex: Male

DRUGS (3)
  1. EXELON [Concomitant]
  2. CLOZAPINE [Suspect]
     Indication: PARKINSON'S DISEASE
     Dosage: 1 DF, 25 MG DAILY
     Route: 048
     Dates: start: 20110101, end: 20110301
  3. STALEVO 100 [Concomitant]

REACTIONS (2)
  - PAPILLOEDEMA [None]
  - VISION BLURRED [None]
